FAERS Safety Report 11932085 (Version 2)
Quarter: 2016Q1

REPORT INFORMATION
  Report Type: Spontaneous
  Country: US (occurrence: US)
  Receive Date: 20160120
  Receipt Date: 20160205
  Transmission Date: 20160526
  Serious: No
  Sender: FDA-Public Use
  Company Number: US-PFIZER INC-2015476431

PATIENT
  Age: 80 Year
  Sex: Male

DRUGS (1)
  1. NEURONTIN [Suspect]
     Active Substance: GABAPENTIN
     Dosage: UNK

REACTIONS (3)
  - Muscular weakness [Recovered/Resolved]
  - Drug hypersensitivity [Recovered/Resolved]
  - Asthenia [Recovered/Resolved]
